FAERS Safety Report 10595303 (Version 1)
Quarter: 2014Q4

REPORT INFORMATION
  Report Type: Spontaneous
  Country: US (occurrence: None)
  Receive Date: 20141119
  Receipt Date: 20141119
  Transmission Date: 20150529
  Serious: No
  Sender: FDA-Public Use
  Company Number: None

PATIENT
  Age: 52 Year
  Sex: Male

DRUGS (2)
  1. TECFIDERA [Suspect]
     Active Substance: DIMETHYL FUMARATE
     Indication: MULTIPLE SCLEROSIS
     Dosage: 120 MG TWICE A DAY FOR 7 DAYS BY MOUTH
     Route: 048
     Dates: start: 20141017, end: 20141023
  2. TECFIDERA [Suspect]
     Active Substance: DIMETHYL FUMARATE
     Indication: MULTIPLE SCLEROSIS
     Dosage: 240 MG TWICE A DAY BY MOUTH
     Route: 048
     Dates: start: 20141024

REACTIONS (5)
  - Fatigue [None]
  - Peroneal nerve palsy [None]
  - No therapeutic response [None]
  - Dyspepsia [None]
  - Dizziness [None]

NARRATIVE: CASE EVENT DATE: 20141029
